FAERS Safety Report 10345421 (Version 1)
Quarter: 2014Q3

REPORT INFORMATION
  Report Type: Spontaneous
  Country: US (occurrence: None)
  Receive Date: 20140724
  Receipt Date: 20140724
  Transmission Date: 20150326
  Serious: Yes (Other)
  Sender: FDA-Public Use
  Company Number: AUR-APL-2014-07858

PATIENT
  Age: 79 Year
  Sex: Female
  Weight: 87 kg

DRUGS (14)
  1. LISINOPRIL. [Suspect]
     Active Substance: LISINOPRIL
     Indication: HYPERTENSION
     Route: 048
  2. NASONEX (NOMETASONE FUROATE) [Concomitant]
  3. PROAIR HFA [Concomitant]
     Active Substance: ALBUTEROL SULFATE
  4. LASIX [Suspect]
     Active Substance: FUROSEMIDE
     Indication: HYPERTENSION
     Dosage: HALF DAILY
  5. NORVASC [Suspect]
     Active Substance: AMLODIPINE BESYLATE
     Indication: HYPERTENSION
     Route: 048
  6. HYDRALAZINE (HYDRALAZINE) [Suspect]
     Active Substance: HYDRALAZINE HYDROCHLORIDE
     Indication: HYPERTENSION
  7. CELEBREX [Concomitant]
     Active Substance: CELECOXIB
  8. METHOCARBAMOL (METHOCARBAMOL) [Concomitant]
  9. ADVAIR DISKUS (FLUTICASONE PROPIONATE, SALMETEROL XINAFOATE) [Concomitant]
  10. IRBESARTAN 300 MG (IRBESARTAN) UNKNOWN, 300 MG [Suspect]
     Active Substance: IRBESARTAN
     Indication: HYPERTENSION
     Route: 048
  11. REVATIO (SILDENAFIL CITRATE) [Concomitant]
  12. ATENOLOL 100 MG (ATENOLOL) UNKNOWN, 100MG [Suspect]
     Active Substance: ATENOLOL
     Indication: HYPERTENSION
     Route: 048
  13. ECORTRIN LOW STRENGTH (ACETYLSALICYLIC ACID) [Concomitant]
  14. IPRATROPIUM BROMIDE W/SALBUTAMOL SULFATE (IPRATROPIUM BROMIDE, SALBUTAMOL SULFATE) [Concomitant]

REACTIONS (7)
  - Dyspnoea [None]
  - Blood pressure increased [None]
  - Dyspnoea exertional [None]
  - Blood pressure inadequately controlled [None]
  - Drug administration error [None]
  - Exercise tolerance decreased [None]
  - Treatment noncompliance [None]
